FAERS Safety Report 5134696-6 (Version None)
Quarter: 2006Q4

REPORT INFORMATION
  Report Type: 
  Country: None (occurrence: None)
  Receive Date: 20061025
  Receipt Date: 20060915
  Transmission Date: 20070319
  Serious: Yes (Death, Hospitalization)
  Sender: FDA-Public Use
  Company Number: GBWYE933515SEP06

PATIENT
  Sex: Male
  Weight: 180 kg

DRUGS (4)
  1. ENBREL [Suspect]
     Indication: PSORIASIS
     Route: 058
     Dates: start: 20060413, end: 20060629
  2. ORLISTAT [Concomitant]
     Dosage: 120 MG FREQUENCY UNKNOWN
     Route: 065
  3. GLICLAZIDE [Concomitant]
     Indication: DIABETES MELLITUS
     Dosage: 80 MG FREQUENCY UNKNOWN
     Route: 048
  4. METFORMIN HCL [Concomitant]
     Indication: DIABETES MELLITUS
     Dosage: 850 UG
     Route: 065

REACTIONS (3)
  - ABDOMINAL PAIN [None]
  - MULTI-ORGAN FAILURE [None]
  - SEPSIS [None]
